FAERS Safety Report 15780003 (Version 2)
Quarter: 2019Q1

REPORT INFORMATION
  Report Type: Spontaneous
  Country: US (occurrence: US)
  Receive Date: 20190102
  Receipt Date: 20190213
  Transmission Date: 20190417
  Serious: No
  Sender: FDA-Public Use
  Company Number: US-DRREDDYS-USA/USA/18/0103943

PATIENT
  Age: 52 Year
  Sex: Female
  Weight: 58.18 kg

DRUGS (6)
  1. PROTONIX [Concomitant]
     Active Substance: PANTOPRAZOLE SODIUM
     Indication: PRODUCT USED FOR UNKNOWN INDICATION
     Route: 065
  2. VITAMIN D [Concomitant]
     Active Substance: CHOLECALCIFEROL
     Indication: PRODUCT USED FOR UNKNOWN INDICATION
     Route: 065
  3. NICOTINE. [Suspect]
     Active Substance: NICOTINE
     Indication: SMOKING CESSATION THERAPY
     Route: 062
  4. NICOTINE. [Suspect]
     Active Substance: NICOTINE
     Route: 062
     Dates: start: 201710
  5. NICOTINE. [Suspect]
     Active Substance: NICOTINE
     Route: 062
  6. FISH OIL [Concomitant]
     Active Substance: FISH OIL
     Indication: PRODUCT USED FOR UNKNOWN INDICATION
     Route: 065

REACTIONS (5)
  - Incorrect product administration duration [Unknown]
  - Treatment noncompliance [Unknown]
  - Scar [Recovering/Resolving]
  - Product complaint [Unknown]
  - Application site burn [Recovered/Resolved]

NARRATIVE: CASE EVENT DATE: 201710
